FAERS Safety Report 11768470 (Version 1)
Quarter: 2015Q4

REPORT INFORMATION
  Report Type: Spontaneous
  Country: JP (occurrence: JP)
  Receive Date: 20151123
  Receipt Date: 20151123
  Transmission Date: 20160304
  Serious: Yes (Hospitalization, Other)
  Sender: FDA-Public Use
  Company Number: JP-TEVA-610818ISR

PATIENT
  Age: 79 Year
  Sex: Male

DRUGS (7)
  1. PROPOFOL. [Suspect]
     Active Substance: PROPOFOL
     Indication: SEIZURE
  2. MIDAZOLAM [Suspect]
     Active Substance: MIDAZOLAM\MIDAZOLAM HYDROCHLORIDE
     Indication: MUSCLE SPASMS
  3. DANTROLENE [Suspect]
     Active Substance: DANTROLENE
     Indication: MUSCLE SPASMS
  4. ROCURONIUM [Suspect]
     Active Substance: ROCURONIUM BROMIDE
     Indication: MUSCLE SPASMS
  5. MORPHINE [Suspect]
     Active Substance: MORPHINE
     Indication: MUSCLE SPASMS
  6. MAGNESIUM SULFATE. [Suspect]
     Active Substance: MAGNESIUM SULFATE
     Indication: MUSCLE SPASMS
  7. DIAZEPAM. [Suspect]
     Active Substance: DIAZEPAM
     Indication: SEIZURE

REACTIONS (2)
  - Hypoventilation [Recovering/Resolving]
  - Cheyne-Stokes respiration [Unknown]
